FAERS Safety Report 25540947 (Version 1)
Quarter: 2025Q3

REPORT INFORMATION
  Report Type: Spontaneous
  Country: EU (occurrence: EU)
  Receive Date: 20250710
  Receipt Date: 20250710
  Transmission Date: 20251020
  Serious: Yes (Death, Other)
  Sender: PHARMACEUTICAL ASSOC
  Company Number: EU-PAIPHARMA-2025-ES-000033

PATIENT
  Age: 70 Year
  Sex: Female

DRUGS (2)
  1. FORTAZ [Suspect]
     Active Substance: CEFTAZIDIME SODIUM
     Indication: Postoperative wound infection
     Dates: start: 20230216
  2. MEROPENEM [Suspect]
     Active Substance: MEROPENEM
     Indication: Postoperative wound infection
     Dates: start: 20230223

REACTIONS (1)
  - Drug reaction with eosinophilia and systemic symptoms [Fatal]
